FAERS Safety Report 6390141-4 (Version None)
Quarter: 2009Q4

REPORT INFORMATION
  Report Type: 
  Country: None (occurrence: None)
  Receive Date: 20091003
  Receipt Date: 20090923
  Transmission Date: 20100525
  Serious: Yes (Death, Hospitalization)
  Sender: FDA-Public Use
  Company Number: 2009-01741

PATIENT
  Age: 68 Year
  Sex: Male

DRUGS (21)
  1. VELCADE [Suspect]
     Indication: MULTIPLE MYELOMA
     Dosage: 1.3 MG/M2, UNK, UNK
     Dates: start: 20081226, end: 20090327
  2. DECADRON [Suspect]
     Indication: MULTIPLE MYELOMA
     Dosage: 20 MG, UNK, ORAL
     Route: 048
     Dates: start: 20081226, end: 20090327
  3. BACTRIM DS [Concomitant]
  4. DIGOXIN [Concomitant]
  5. BISACODYL (BISACODYL) [Concomitant]
  6. LOSARTAN POTASSIUM [Concomitant]
  7. ASPIRIN [Concomitant]
  8. SIMVASTATIN [Concomitant]
  9. ZOFRAN [Concomitant]
  10. MULTIVITAMINS (ERGOCALCIFEROL, PANTHENOL, NICOTINAMIDE, RIBOFLAVIN, TH [Concomitant]
  11. TOPROL-XL [Concomitant]
  12. NOVOLOG [Concomitant]
  13. INSULIN SUSPENSION, NPH (INSULIN INJECTION, ISOPHANE) [Concomitant]
  14. FERROUS SULFATE TAB [Concomitant]
  15. SENOKOT [Concomitant]
  16. BENADRYL (SODIUM CITRATE, AMMONIUM CHLORIDE, MENTHOL, DIPHENHYDRAMINE [Concomitant]
  17. ACYCLOVIR [Concomitant]
  18. TYLENOL [Concomitant]
  19. ZANTAC 150 [Concomitant]
  20. FISH OIL (FISH OIL) [Concomitant]
  21. FISH OIL (FISH OIL) [Concomitant]

REACTIONS (8)
  - BRONCHIECTASIS [None]
  - CARDIAC ARREST [None]
  - DECREASED APPETITE [None]
  - PNEUMONIA [None]
  - PULMONARY FIBROSIS [None]
  - PULMONARY TOXICITY [None]
  - SYNCOPE [None]
  - WEIGHT DECREASED [None]
